FAERS Safety Report 16361897 (Version 1)
Quarter: 2019Q2

REPORT INFORMATION
  Report Type: Spontaneous
  Country: US (occurrence: US)
  Receive Date: 20190528
  Receipt Date: 20190528
  Transmission Date: 20190711
  Serious: Yes (Hospitalization)
  Sender: FDA-Public Use
  Company Number: US-BAYER-2019-099594

PATIENT
  Age: 67 Year
  Sex: Male
  Weight: 92.2 kg

DRUGS (4)
  1. ACETYLSALICYLIC ACID (CARDIO) [Suspect]
     Active Substance: ASPIRIN
     Indication: HYPERTENSION
  2. ACETYLSALICYLIC ACID (CARDIO) [Interacting]
     Active Substance: ASPIRIN
     Indication: VENTRICULAR ASSIST DEVICE INSERTION
  3. ACETYLSALICYLIC ACID (CARDIO) [Interacting]
     Active Substance: ASPIRIN
     Indication: CARDIOMYOPATHY
  4. WARFARIN [Interacting]
     Active Substance: WARFARIN
     Indication: VENTRICULAR ASSIST DEVICE INSERTION

REACTIONS (4)
  - Fall [None]
  - Subdural haematoma [None]
  - Labelled drug-drug interaction medication error [None]
  - Cerebral haemorrhage [None]
